FAERS Safety Report 25089634 (Version 2)
Quarter: 2025Q1

REPORT INFORMATION
  Report Type: Spontaneous
  Country: CN (occurrence: CN)
  Receive Date: 20250318
  Receipt Date: 20250328
  Transmission Date: 20250409
  Serious: Yes (Other)
  Sender: TEVA
  Company Number: CN-ABBVIE-6168656

PATIENT
  Age: 28 Year
  Sex: Male

DRUGS (1)
  1. ACITRETIN [Suspect]
     Active Substance: ACITRETIN
     Indication: Generalised pustular psoriasis
     Route: 048

REACTIONS (3)
  - Teratogenicity [Unknown]
  - Dry skin [Unknown]
  - Therapeutic product effect incomplete [Unknown]
